FAERS Safety Report 9085276 (Version 1)
Quarter: 2013Q1

REPORT INFORMATION
  Report Type: Spontaneous
  Country: US (occurrence: US)
  Receive Date: 20130131
  Receipt Date: 20130131
  Transmission Date: 20140127
  Serious: No
  Sender: FDA-Public Use
  Company Number: US-PFIZER INC-2013032938

PATIENT
  Sex: Male

DRUGS (2)
  1. VIAGRA [Suspect]
     Dosage: UNK, ONCE IN A WHILE, HREE TIMES A YEAR
  2. VIAGRA [Suspect]
     Dosage: UNK, 1 TABLET A WEEK

REACTIONS (5)
  - Back pain [Unknown]
  - Arthralgia [Unknown]
  - Sciatica [Unknown]
  - Pain [Unknown]
  - Abdominal discomfort [Unknown]
